FAERS Safety Report 6985178-8 (Version None)
Quarter: 2010Q3

REPORT INFORMATION
  Report Type: 
  Country: None (occurrence: None)
  Receive Date: 20100915
  Receipt Date: 20100907
  Transmission Date: 20110219
  Serious: Yes (Hospitalization)
  Sender: FDA-Public Use
  Company Number: NO-AMGEN-QUU420742

PATIENT
  Sex: Female

DRUGS (1)
  1. ARANESP [Suspect]
     Indication: RENAL FAILURE CHRONIC
     Dates: start: 20081001

REACTIONS (4)
  - DEHYDRATION [None]
  - EMBOLIC STROKE [None]
  - FISTULA REPAIR [None]
  - HAEMOGLOBIN INCREASED [None]
